FAERS Safety Report 13759904 (Version 3)
Quarter: 2017Q3

REPORT INFORMATION
  Report Type: Spontaneous
  Country: US (occurrence: US)
  Receive Date: 20170717
  Receipt Date: 20170809
  Transmission Date: 20171127
  Serious: Yes (Hospitalization)
  Sender: FDA-Public Use
  Company Number: US-BAUSCH-BL-2017-016480

PATIENT
  Age: 73 Year
  Sex: Female
  Weight: 72.19 kg

DRUGS (6)
  1. CELEBREX [Concomitant]
     Active Substance: CELECOXIB
     Indication: ARTHRITIS
  2. LACTULOSE. [Suspect]
     Active Substance: LACTULOSE
     Route: 065
  3. XIFAXAN [Suspect]
     Active Substance: RIFAXIMIN
     Indication: HEPATIC ENCEPHALOPATHY
     Route: 048
  4. INSULIN [Concomitant]
     Active Substance: INSULIN NOS
     Indication: DIABETES MELLITUS
  5. LACTULOSE. [Suspect]
     Active Substance: LACTULOSE
     Indication: HEPATIC ENCEPHALOPATHY
     Route: 065
  6. VITAMIN E [Concomitant]
     Active Substance: .ALPHA.-TOCOPHEROL
     Indication: PRODUCT USED FOR UNKNOWN INDICATION

REACTIONS (5)
  - Infection [Recovered/Resolved]
  - Hepatic cirrhosis [Not Recovered/Not Resolved]
  - Ammonia increased [Recovered/Resolved]
  - Tremor [Not Recovered/Not Resolved]
  - Diarrhoea [Recovered/Resolved]

NARRATIVE: CASE EVENT DATE: 2011
